FAERS Safety Report 6117626-X (Version None)
Quarter: 2009Q1

REPORT INFORMATION
  Report Type: 
  Country: None (occurrence: None)
  Receive Date: 20090314
  Receipt Date: 20090123
  Transmission Date: 20090719
  Serious: No
  Sender: FDA-Public Use
  Company Number: US-ABBOTT-09P-163-0499836-00

PATIENT
  Sex: Female
  Weight: 70.824 kg

DRUGS (1)
  1. HUMIRA [Suspect]
     Indication: CROHN'S DISEASE
     Dates: start: 20081101

REACTIONS (6)
  - ABDOMINAL DISTENSION [None]
  - ABNORMAL FAECES [None]
  - FLATULENCE [None]
  - INCONTINENCE [None]
  - PROCTALGIA [None]
  - WEIGHT INCREASED [None]
